FAERS Safety Report 6771771-4 (Version None)
Quarter: 2010Q2

REPORT INFORMATION
  Report Type: 
  Country: None (occurrence: None)
  Receive Date: 20100616
  Receipt Date: 20100106
  Transmission Date: 20101027
  Serious: No
  Sender: FDA-Public Use
  Company Number: US-ASTRAZENECA-2010SE00602

PATIENT
  Age: 17772 Day
  Sex: Male
  Weight: 99.8 kg

DRUGS (1)
  1. ATACAND [Suspect]
     Indication: HYPERTENSION
     Route: 048
     Dates: start: 20100106

REACTIONS (2)
  - DIZZINESS [None]
  - VISION BLURRED [None]
